FAERS Safety Report 10475633 (Version 5)
Quarter: 2016Q2

REPORT INFORMATION
  Report Type: Spontaneous
  Country: SE (occurrence: DK)
  Receive Date: 20140925
  Receipt Date: 20160531
  Transmission Date: 20160815
  Serious: Yes (Other)
  Sender: FDA-Public Use
  Company Number: DK-AMGEN-DNKSP2014071919

PATIENT
  Age: 62 Year
  Sex: Female

DRUGS (7)
  1. ALENDRONAT [Suspect]
     Active Substance: ALENDRONATE SODIUM
     Indication: OSTEOPOROSIS
     Dosage: 70 MG, QWK
     Route: 065
     Dates: start: 2007, end: 2011
  2. CALCIUM [Concomitant]
     Active Substance: CALCIUM
  3. TRUXAL [Concomitant]
     Active Substance: CHLORPROTHIXENE
     Indication: DEPRESSED MOOD
  4. IMOVANE [Concomitant]
     Active Substance: ZOPICLONE
     Indication: SLEEP DISORDER
     Dates: start: 200810
  5. PROLIA [Suspect]
     Active Substance: DENOSUMAB
     Indication: OSTEOPOROSIS
     Dosage: 60 MG/ML, UNK
     Route: 058
     Dates: start: 20110101, end: 20131101
  6. TRUXAL [Concomitant]
     Active Substance: CHLORPROTHIXENE
     Indication: DEPRESSION
     Dates: start: 200810
  7. VITAMIN D                          /00107901/ [Concomitant]
     Active Substance: ERGOCALCIFEROL

REACTIONS (13)
  - Abdominal pain [Recovered/Resolved]
  - Productive cough [Recovering/Resolving]
  - Palpitations [Recovering/Resolving]
  - Exposed bone in jaw [Recovered/Resolved]
  - Jaw operation [Recovered/Resolved]
  - Osteonecrosis of jaw [Recovered/Resolved]
  - Gastrointestinal disorder [Recovered/Resolved]
  - Loose tooth [Recovered/Resolved with Sequelae]
  - Depressed mood [Recovering/Resolving]
  - Fatigue [Recovering/Resolving]
  - Abdominal distension [Recovered/Resolved]
  - Nausea [Recovering/Resolving]
  - Malaise [Recovering/Resolving]

NARRATIVE: CASE EVENT DATE: 201405
